FAERS Safety Report 5488124-1 (Version None)
Quarter: 2007Q4

REPORT INFORMATION
  Report Type: 
  Country: None (occurrence: None)
  Receive Date: 20071005
  Receipt Date: 20070622
  Transmission Date: 20080405
  Serious: Yes (Other)
  Sender: FDA-Public Use
  Company Number: PHEH2007US09193

PATIENT
  Sex: Female

DRUGS (2)
  1. LOPRESSOR [Suspect]
     Indication: HYPERTENSION
  2. ENALAPRIL MALEATE [Suspect]
     Indication: HYPERTENSION
     Dates: start: 20020101

REACTIONS (2)
  - BLOOD PRESSURE INADEQUATELY CONTROLLED [None]
  - DRUG INEFFECTIVE [None]
